FAERS Safety Report 21792286 (Version 2)
Quarter: 2023Q1

REPORT INFORMATION
  Report Type: Spontaneous
  Country: GB (occurrence: None)
  Receive Date: 20221229
  Receipt Date: 20230110
  Transmission Date: 20230418
  Serious: Yes (Hospitalization, Other)
  Sender: FDA-Public Use
  Company Number: None

PATIENT
  Age: 85 Year
  Sex: Male
  Weight: 103 kg

DRUGS (12)
  1. METHOTREXATE [Suspect]
     Active Substance: METHOTREXATE
     Indication: Product used for unknown indication
     Dosage: 12.5 MG, 5 DOSAGE FORM, QW (FOR 3)
     Route: 065
     Dates: start: 20220516
  2. MODERNA COVID-19 VACCINE [Suspect]
     Active Substance: ELASOMERAN
     Indication: COVID-19 immunisation
     Route: 065
     Dates: start: 20220822, end: 20220822
  3. ADCAL [Concomitant]
     Route: 065
     Dates: start: 20220125
  4. AMLODIPINE [Concomitant]
     Active Substance: AMLODIPINE BESYLATE
     Indication: Blood pressure abnormal
     Route: 065
     Dates: start: 20220125
  5. ATORVASTATIN [Concomitant]
     Active Substance: ATORVASTATIN
     Dosage: AT NIGHT
     Route: 065
     Dates: start: 20220125
  6. COCODAMOL [Concomitant]
     Active Substance: ACETAMINOPHEN\CODEINE PHOSPHATE
     Indication: Pain
     Dosage: TOOK 2-4 TIMES PER DAY AS NEEDED
     Route: 065
     Dates: start: 20220912
  7. DIGOXIN [Concomitant]
     Active Substance: DIGOXIN
     Dosage: AS CARDIOLOGIST
     Route: 065
     Dates: start: 20220125
  8. DUTASTERIDE [Concomitant]
     Active Substance: DUTASTERIDE
     Route: 065
     Dates: start: 20220125
  9. FOLIC ACID [Concomitant]
     Active Substance: FOLIC ACID
     Dosage: NOT ON SAME DAY AS METHOTREXATE
     Route: 065
     Dates: start: 20220125
  10. FUROSEMIDE [Concomitant]
     Active Substance: FUROSEMIDE
     Dosage: EACH MORNING OR AS PER HOSPITALIZATION
     Route: 065
     Dates: start: 20220125
  11. OMEPRAZOLE [Concomitant]
     Active Substance: OMEPRAZOLE
     Indication: Abdominal pain upper
     Route: 065
     Dates: start: 20220125
  12. SENNA [Concomitant]
     Active Substance: SENNA LEAF\SENNOSIDES\SENNOSIDES A AND B
     Indication: Constipation
     Dosage: TAKE 1 OR 2 AT NIGHT
     Route: 065
     Dates: start: 20220125

REACTIONS (4)
  - Musculoskeletal pain [Recovering/Resolving]
  - Arthralgia [Not Recovered/Not Resolved]
  - Lethargy [Not Recovered/Not Resolved]
  - Nausea [Not Recovered/Not Resolved]

NARRATIVE: CASE EVENT DATE: 20220101
